FAERS Safety Report 4318820-0 (Version None)
Quarter: 2004Q1

REPORT INFORMATION
  Report Type: 
  Country: None (occurrence: None)
  Receive Date: 20040315
  Receipt Date: 20031210
  Transmission Date: 20041129
  Serious: Yes (Hospitalization)
  Sender: FDA-Public Use
  Company Number: D01200301910

PATIENT
  Age: 68 Year
  Sex: Male

DRUGS (4)
  1. (ALFUZOSIN) - TABLET - 10 MG [Suspect]
     Indication: URINARY RETENTION
     Dosage: 10 MG OD ORAL
     Route: 048
     Dates: start: 20031201, end: 20031208
  2. CORINFAR (NIFEDIPINE) [Concomitant]
  3. VASOPREN (ENALAPRIL) [Concomitant]
  4. CHLOFAZOLIN (CLONIDINE HYDROCHLORIDE) [Concomitant]

REACTIONS (11)
  - CHEST X-RAY ABNORMAL [None]
  - CIRCULATORY COLLAPSE [None]
  - DISORIENTATION [None]
  - FALL [None]
  - HYPOTONIA [None]
  - MALAISE [None]
  - PERICARDIAL DISEASE [None]
  - PLEURAL ADHESION [None]
  - PULMONARY ARTERIAL PRESSURE INCREASED [None]
  - PULMONARY EMBOLISM [None]
  - VERTIGO [None]
